FAERS Safety Report 9507425 (Version 1)
Quarter: 2013Q3

REPORT INFORMATION
  Report Type: Spontaneous
  Country: US (occurrence: None)
  Receive Date: 20130906
  Receipt Date: 20130906
  Transmission Date: 20140515
  Serious: Yes (Disabling)
  Sender: FDA-Public Use
  Company Number: None

PATIENT
  Age: 62 Year
  Sex: Female
  Weight: 81.65 kg

DRUGS (4)
  1. SYNTHROID [Concomitant]
  2. CYMBALTA [Concomitant]
  3. METIFORM [Concomitant]
  4. ATORVASTATIN [Suspect]
     Indication: BLOOD CHOLESTEROL
     Route: 048
     Dates: start: 20130115, end: 20130801

REACTIONS (1)
  - Diabetes mellitus [None]
